FAERS Safety Report 6494256-1 (Version None)
Quarter: 2009Q4

REPORT INFORMATION
  Report Type: 
  Country: None (occurrence: None)
  Receive Date: 20091214
  Receipt Date: 20090129
  Transmission Date: 20100525
  Serious: No
  Sender: FDA-Public Use
  Company Number: US-BRISTOL-MYERS SQUIBB COMPANY-14487797

PATIENT
  Age: 86 Year
  Sex: Female

DRUGS (2)
  1. ABILIFY [Suspect]
     Indication: DEPRESSION
     Dosage: DURATION: LESS THAN ONE WEEK.
  2. MEGACE [Concomitant]

REACTIONS (1)
  - BLOOD SODIUM DECREASED [None]
